FAERS Safety Report 20602763 (Version 4)
Quarter: 2022Q2

REPORT INFORMATION
  Report Type: Spontaneous
  Country: IN (occurrence: IN)
  Receive Date: 20220316
  Receipt Date: 20220505
  Transmission Date: 20220720
  Serious: Yes (Other)
  Sender: FDA-Public Use
  Company Number: IN-PFIZER INC-2021622257

PATIENT
  Age: 76 Year
  Sex: Female
  Weight: 55 kg

DRUGS (10)
  1. PALBOCICLIB [Suspect]
     Active Substance: PALBOCICLIB
     Indication: Breast cancer metastatic
     Dosage: 100 MG
  2. PALBOCICLIB [Suspect]
     Active Substance: PALBOCICLIB
     Dosage: 125 MG, 1X/DAY (FOR 14 DAYS ON)
     Route: 048
     Dates: start: 20210417
  3. PALBOCICLIB [Suspect]
     Active Substance: PALBOCICLIB
     Dosage: 125 MG, 1X/DAY (FOR 18 DAYS ON, 10 DAYS OFF)
     Dates: start: 20210731
  4. PALBOCICLIB [Suspect]
     Active Substance: PALBOCICLIB
     Dosage: 125 MG, 1X/DAY (FOR 21 DAYS ON)
     Dates: start: 20220223
  5. LETROZOLE [Concomitant]
     Active Substance: LETROZOLE
     Dosage: 2.5 ONCE DAILY (1-0  28 DAYS)
     Dates: start: 20210418
  6. CALCIUM\CHOLECALCIFEROL [Concomitant]
     Active Substance: CALCIUM\CHOLECALCIFEROL
     Dosage: UNK, 2X/DAY (0-1-1 28 DAYS)
     Dates: start: 20210418
  7. DULCOLAX (BISACODYL) [Concomitant]
     Active Substance: BISACODYL
     Dosage: UNK, 1X/DAY (0-1 28 DAYS)
     Dates: start: 20210418
  8. FOLVITE [FOLIC ACID] [Concomitant]
     Dosage: UNK, 1X/DAY (0-1-0 28 DAYS)
  9. FOLVITE [FOLIC ACID] [Concomitant]
     Dosage: UNK
     Dates: start: 20210418
  10. ZOLEDRONIC ACID [Concomitant]
     Active Substance: ZOLEDRONIC ACID
     Dosage: 3MG+ 100ML NS IV OVER 15 MIN
     Route: 042

REACTIONS (12)
  - Platelet count abnormal [Unknown]
  - Constipation [Unknown]
  - Pain [Unknown]
  - Weight increased [Unknown]
  - Anorectal discomfort [Unknown]
  - Haemoglobin decreased [Unknown]
  - White blood cell count decreased [Unknown]
  - Bone pain [Unknown]
  - Rash [Unknown]
  - Gait disturbance [Unknown]
  - Neoplasm progression [Unknown]
  - Product prescribing issue [Unknown]

NARRATIVE: CASE EVENT DATE: 20210619
